FAERS Safety Report 5795329-9 (Version None)
Quarter: 2008Q2

REPORT INFORMATION
  Report Type: 
  Country: None (occurrence: None)
  Receive Date: 20080630
  Receipt Date: 20080619
  Transmission Date: 20081010
  Serious: Yes (Hospitalization)
  Sender: FDA-Public Use
  Company Number: JP-JNJFOC-20060601247

PATIENT
  Sex: Male
  Weight: 60 kg

DRUGS (46)
  1. REMICADE [Suspect]
     Route: 042
  2. REMICADE [Suspect]
     Route: 042
  3. REMICADE [Suspect]
     Route: 042
  4. REMICADE [Suspect]
     Route: 042
  5. REMICADE [Suspect]
     Route: 042
  6. REMICADE [Suspect]
     Route: 042
  7. REMICADE [Suspect]
     Route: 042
  8. REMICADE [Suspect]
     Route: 042
  9. REMICADE [Suspect]
     Route: 042
  10. REMICADE [Suspect]
     Route: 042
  11. REMICADE [Suspect]
     Route: 042
  12. REMICADE [Suspect]
     Route: 042
  13. REMICADE [Suspect]
     Route: 042
  14. REMICADE [Suspect]
     Route: 042
  15. REMICADE [Suspect]
     Route: 042
  16. REMICADE [Suspect]
     Indication: RHEUMATOID ARTHRITIS
     Route: 042
  17. RHEUMATREX [Suspect]
     Route: 048
  18. RHEUMATREX [Suspect]
     Indication: RHEUMATOID ARTHRITIS
     Route: 048
  19. PREDNISOLONE [Suspect]
     Route: 048
  20. PREDNISOLONE [Suspect]
     Route: 048
  21. PREDNISOLONE [Suspect]
     Route: 048
  22. PREDNISOLONE [Suspect]
     Route: 048
  23. PREDNISOLONE [Suspect]
     Route: 048
  24. PREDNISOLONE [Suspect]
     Route: 048
  25. PREDNISOLONE [Suspect]
     Route: 048
  26. PREDNISOLONE [Suspect]
     Indication: RHEUMATOID ARTHRITIS
     Route: 048
  27. BREDININ [Suspect]
     Indication: RHEUMATOID ARTHRITIS
     Route: 048
  28. CLARITHROMYCIN [Suspect]
     Indication: BRONCHITIS
     Route: 048
  29. MOBIC [Concomitant]
     Indication: RHEUMATOID ARTHRITIS
     Route: 048
  30. ALFAROL [Concomitant]
     Indication: OSTEOPOROSIS PROPHYLAXIS
     Dosage: DOSE=^1 RG^
     Route: 048
  31. ACTONEL [Concomitant]
     Indication: OSTEOPOROSIS PROPHYLAXIS
     Route: 048
  32. CYTOTEC [Concomitant]
     Indication: GASTRITIS PROPHYLAXIS
     Dosage: DOSE=^400 RG^
     Route: 048
  33. NOLEPTAN [Concomitant]
     Indication: BRONCHITIS CHRONIC
     Route: 048
  34. ISCOTIN [Concomitant]
     Indication: ANTIBIOTIC PROPHYLAXIS
     Route: 048
  35. NORVASC [Concomitant]
     Indication: HYPERTENSION
     Route: 048
  36. MINOMYCIN [Concomitant]
     Indication: BRONCHITIS CHRONIC
     Route: 048
  37. THEOLONG [Concomitant]
     Indication: BRONCHITIS CHRONIC
     Route: 048
  38. GASLON N [Concomitant]
     Indication: GASTRITIS PROPHYLAXIS
     Route: 048
  39. VOLTAREN [Concomitant]
     Indication: RHEUMATOID ARTHRITIS
  40. ZANTAC [Concomitant]
     Route: 048
  41. VITAMEDIN-S [Concomitant]
     Route: 048
  42. HOKUNALIN TAPE [Concomitant]
  43. SHIMBU-TO [Concomitant]
     Route: 048
  44. EURODIN [Concomitant]
     Route: 048
  45. FOLIAMIN [Concomitant]
     Indication: VITAMIN SUPPLEMENTATION
     Route: 048
  46. BROTIZOLAM [Concomitant]
     Route: 048

REACTIONS (7)
  - ATLANTOAXIAL INSTABILITY [None]
  - BLOOD PRESSURE INCREASED [None]
  - BRONCHITIS [None]
  - INFUSION RELATED REACTION [None]
  - LUNG INFECTION [None]
  - PNEUMONIA [None]
  - PNEUMONIA KLEBSIELLA [None]
